FAERS Safety Report 4676758-3 (Version None)
Quarter: 2005Q2

REPORT INFORMATION
  Report Type: 
  Country: None (occurrence: None)
  Receive Date: 20050527
  Receipt Date: 20050517
  Transmission Date: 20051028
  Serious: Yes (Other)
  Sender: FDA-Public Use
  Company Number: US-MERCK-0505USA02232

PATIENT
  Sex: Male

DRUGS (1)
  1. INVANZ [Suspect]
     Indication: ABSCESS
     Route: 042
     Dates: start: 20040101, end: 20040101

REACTIONS (1)
  - MYOCLONIC EPILEPSY [None]
